FAERS Safety Report 6302062-3 (Version None)
Quarter: 2009Q3

REPORT INFORMATION
  Report Type: 
  Country: None (occurrence: None)
  Receive Date: 20090807
  Receipt Date: 20090729
  Transmission Date: 20100115
  Serious: Yes (Other)
  Sender: FDA-Public Use
  Company Number: US-ABBOTT-09P-163-0588312-00

PATIENT
  Sex: Male

DRUGS (4)
  1. HUMIRA [Suspect]
     Indication: CROHN'S DISEASE
     Route: 058
     Dates: start: 20080501, end: 20080901
  2. HUMIRA [Suspect]
     Route: 058
     Dates: start: 20080901
  3. FISH OIL [Concomitant]
     Indication: DRUG USE FOR UNKNOWN INDICATION
  4. M.V.I. [Concomitant]
     Indication: DRUG USE FOR UNKNOWN INDICATION

REACTIONS (6)
  - CONFUSIONAL STATE [None]
  - CROHN'S DISEASE [None]
  - HYPOAESTHESIA [None]
  - MUSCLE TWITCHING [None]
  - PARAESTHESIA [None]
  - VITAMIN D DECREASED [None]
